FAERS Safety Report 8886627 (Version 2)
Quarter: 2012Q4

REPORT INFORMATION
  Report Type: 
  Country: US (occurrence: US)
  Receive Date: 20121105
  Receipt Date: 20121116
  Transmission Date: 20130627
  Serious: No
  Sender: FDA-Public Use
  Company Number: US-PFIZER INC-2012274481

PATIENT
  Age: 45 Year
  Sex: Female
  Weight: 52.61 kg

DRUGS (2)
  1. PRISTIQ [Suspect]
     Indication: DEPRESSION
     Dosage: 100 mg, Daily
     Route: 048
     Dates: start: 2009
  2. PRISTIQ [Suspect]
     Dosage: 100 mg, alternate day
     Route: 048
     Dates: start: 201209

REACTIONS (8)
  - Drug withdrawal syndrome [Unknown]
  - Nervousness [Unknown]
  - Vertigo [Unknown]
  - Hyperhidrosis [Unknown]
  - Dizziness [Unknown]
  - Tremor [Unknown]
  - Headache [Unknown]
  - Paraesthesia [Unknown]
